FAERS Safety Report 25103566 (Version 5)
Quarter: 2025Q3

REPORT INFORMATION
  Report Type: Spontaneous
  Country: US (occurrence: US)
  Receive Date: 20250321
  Receipt Date: 20250926
  Transmission Date: 20251021
  Serious: No
  Sender: BRISTOL-MYERS SQUIBB COMPANY
  Company Number: US-BRISTOL-MYERS SQUIBB COMPANY-2025-042040

PATIENT
  Age: 90 Year
  Sex: Female

DRUGS (1)
  1. REVLIMID [Suspect]
     Active Substance: LENALIDOMIDE
     Indication: Plasma cell myeloma
     Dosage: DAILY FOR 21 DAYS
     Dates: start: 202411

REACTIONS (6)
  - Constipation [Recovered/Resolved]
  - Fatigue [Unknown]
  - Weight decreased [Unknown]
  - Peripheral swelling [Unknown]
  - Alopecia [Unknown]
  - Urinary tract infection [Unknown]
